APPROVED DRUG PRODUCT: SPIRONOLACTONE W/ HYDROCHLOROTHIAZIDE
Active Ingredient: HYDROCHLOROTHIAZIDE; SPIRONOLACTONE
Strength: 25MG;25MG
Dosage Form/Route: TABLET;ORAL
Application: A087948 | Product #001
Applicant: PARKE DAVIS DIV WARNER LAMBERT CO
Approved: Feb 22, 1983 | RLD: No | RS: No | Type: DISCN